FAERS Safety Report 9921489 (Version 1)
Quarter: 2014Q1

REPORT INFORMATION
  Report Type: Report from Study
  Country: AU (occurrence: AU)
  Receive Date: 20140225
  Receipt Date: 20140225
  Transmission Date: 20141002
  Serious: Yes (Other)
  Sender: FDA-Public Use
  Company Number: AU-SA-2013SA106005

PATIENT
  Age: 52 Year
  Sex: Female

DRUGS (8)
  1. ARAVA [Suspect]
     Indication: PRODUCT USED FOR UNKNOWN INDICATION
     Route: 048
     Dates: start: 20060319
  2. MTX [Concomitant]
     Indication: RHEUMATOID ARTHRITIS
  3. MTX [Concomitant]
     Indication: RHEUMATOID ARTHRITIS
  4. SERETIDE [Concomitant]
  5. VENTOLINE [Concomitant]
  6. FOLIC ACID [Concomitant]
  7. VITAMIN D3 [Concomitant]
  8. PREDNISONE [Concomitant]
     Indication: RHEUMATOID ARTHRITIS
     Dates: end: 201307

REACTIONS (5)
  - Glaucoma [Not Recovered/Not Resolved]
  - Condition aggravated [Not Recovered/Not Resolved]
  - Diarrhoea [Not Recovered/Not Resolved]
  - Mouth ulceration [Not Recovered/Not Resolved]
  - Alopecia [Not Recovered/Not Resolved]
